FAERS Safety Report 26134080 (Version 1)
Quarter: 2025Q4

REPORT INFORMATION
  Report Type: Spontaneous
  Country: EU (occurrence: EU)
  Receive Date: 20251209
  Receipt Date: 20251209
  Transmission Date: 20260117
  Serious: Yes (Disabling)
  Sender: RANBAXY
  Company Number: EU-EMA-DD-20250828-7482707-090303

PATIENT
  Age: 46 Year
  Sex: Male

DRUGS (5)
  1. LEVETIRACETAM [Suspect]
     Active Substance: LEVETIRACETAM
     Indication: Migraine
     Dosage: 500 MILLIGRAM, BID
     Route: 065
  2. ACETAMINOPHEN [Suspect]
     Active Substance: ACETAMINOPHEN
     Indication: Pain in extremity
     Dosage: 1 GRAM, TID
     Route: 065
  3. PREGABALIN [Suspect]
     Active Substance: PREGABALIN
     Indication: Pain in extremity
     Dosage: 150 MILLIGRAM, BID, PREGABALIN 150MG/12H.
     Route: 065
  4. DULOXETINE [Suspect]
     Active Substance: DULOXETINE
     Indication: Pain in extremity
     Dosage: 60 MILLIGRAM, QD
     Route: 065
  5. IBUPROFEN [Suspect]
     Active Substance: IBUPROFEN
     Indication: Pain in extremity
     Dosage: 600 MILLIGRAM, TID
     Route: 065

REACTIONS (3)
  - Anxiety [Recovered/Resolved]
  - Depressive symptom [Recovered/Resolved]
  - Drug ineffective [Recovered/Resolved]
